FAERS Safety Report 5402337-6 (Version None)
Quarter: 2007Q3

REPORT INFORMATION
  Report Type: 
  Country: None (occurrence: None)
  Receive Date: 20070730
  Receipt Date: 20070730
  Transmission Date: 20080115
  Serious: Yes (Hospitalization)
  Sender: FDA-Public Use
  Company Number: None

PATIENT
  Age: 47 Year
  Sex: Female
  Weight: 48.9885 kg

DRUGS (1)
  1. TOPAMAX [Suspect]
     Indication: BIPOLAR II DISORDER
     Dosage: 200MG ? BID PO
     Route: 048
     Dates: start: 20021201, end: 20030301

REACTIONS (6)
  - FACIAL BONES FRACTURE [None]
  - HAND FRACTURE [None]
  - LOSS OF CONSCIOUSNESS [None]
  - MOUTH INJURY [None]
  - NEPHROLITHIASIS [None]
  - SKULL FRACTURE [None]
